FAERS Safety Report 16364887 (Version 2)
Quarter: 2019Q2

REPORT INFORMATION
  Report Type: Spontaneous
  Country: US (occurrence: US)
  Receive Date: 20190529
  Receipt Date: 20190621
  Transmission Date: 20190711
  Serious: No
  Sender: FDA-Public Use
  Company Number: US-ASTRAZENECA-2019SE69630

PATIENT
  Sex: Female

DRUGS (2)
  1. DYMISTE [Concomitant]
     Indication: SEASONAL ALLERGY
     Route: 045
  2. PULMICORT FLEXHALER [Suspect]
     Active Substance: BUDESONIDE
     Indication: ASTHMA
     Route: 055
     Dates: start: 201902

REACTIONS (4)
  - Product dose omission [Not Recovered/Not Resolved]
  - Device malfunction [Unknown]
  - Device failure [Unknown]
  - Intentional product misuse [Not Recovered/Not Resolved]
